FAERS Safety Report 5991086-1 (Version None)
Quarter: 2008Q4

REPORT INFORMATION
  Report Type: 
  Country: None (occurrence: None)
  Receive Date: 20081202
  Receipt Date: 20080411
  Transmission Date: 20090506
  Serious: Yes (Disabling, Other)
  Sender: FDA-Public Use
  Company Number: WAES 0704USA05728

PATIENT
  Age: 56 Year
  Sex: Female

DRUGS (3)
  1. FOSAMAX [Suspect]
     Indication: OSTEOPENIA
     Dosage: 70 MG/WKY/PO
     Route: 048
     Dates: start: 20040102
  2. FOSAMAX [Suspect]
     Indication: OSTEOPOROSIS
     Dosage: 70 MG/WKY/PO
     Route: 048
     Dates: start: 20040102
  3. HORMONES (UNSPECIFIED) [Concomitant]

REACTIONS (23)
  - ABDOMINAL PAIN [None]
  - ABDOMINAL PAIN UPPER [None]
  - ADVERSE EVENT [None]
  - BACK PAIN [None]
  - BARRETT'S OESOPHAGUS [None]
  - BASAL CELL CARCINOMA [None]
  - BLOOD CHOLESTEROL INCREASED [None]
  - DENTAL CARIES [None]
  - DEPRESSION [None]
  - DYSURIA [None]
  - FALL [None]
  - FATIGUE [None]
  - GASTRITIS ATROPHIC [None]
  - HAEMATURIA [None]
  - HYPERTENSION [None]
  - IRRITABLE BOWEL SYNDROME [None]
  - JAW DISORDER [None]
  - MIGRAINE [None]
  - MYALGIA [None]
  - OSTEOMYELITIS [None]
  - POLLAKIURIA [None]
  - RHINITIS ALLERGIC [None]
  - WRIST FRACTURE [None]
